FAERS Safety Report 6732483-6 (Version None)
Quarter: 2010Q2

REPORT INFORMATION
  Report Type: 
  Country: None (occurrence: None)
  Receive Date: 20100519
  Receipt Date: 20100430
  Transmission Date: 20101027
  Serious: Yes (Hospitalization, Other)
  Sender: FDA-Public Use
  Company Number: US-SANOFI-AVENTIS-A03200501825

PATIENT
  Age: 64 Year
  Sex: Female
  Weight: 52.2 kg

DRUGS (6)
  1. CLOPIDOGREL BISULFATE [Suspect]
     Indication: ANGIOGRAM
     Dosage: UNIT DOSE: 75 MG
     Route: 048
     Dates: start: 20050329, end: 20051228
  2. CLOPIDOGREL BISULFATE [Suspect]
     Indication: ANGIOPLASTY
     Dosage: UNIT DOSE: 75 MG
     Route: 048
     Dates: start: 20050329, end: 20051228
  3. CLOPIDOGREL BISULFATE [Suspect]
     Indication: STENT PLACEMENT
     Dosage: UNIT DOSE: 75 MG
     Route: 048
     Dates: start: 20050329, end: 20051228
  4. ASPIRIN [Suspect]
     Dosage: UNIT DOSE: 81 MG
     Route: 048
     Dates: start: 20050329
  5. TOPROL-XL [Suspect]
     Indication: DRUG USE FOR UNKNOWN INDICATION
     Route: 048
     Dates: start: 20050329, end: 20050101
  6. LIPITOR [Concomitant]
     Indication: DRUG USE FOR UNKNOWN INDICATION
     Dosage: UNIT DOSE: 40 MG
     Route: 048
     Dates: start: 20050329

REACTIONS (13)
  - ANAEMIA [None]
  - ARTERIOSCLEROSIS CORONARY ARTERY [None]
  - CONSTIPATION [None]
  - CONTUSION [None]
  - DIZZINESS [None]
  - FATIGUE [None]
  - HAEMATOMA [None]
  - HAEMORRHAGE SUBCUTANEOUS [None]
  - HAEMORRHAGIC DIATHESIS [None]
  - INTESTINAL HAEMORRHAGE [None]
  - OCULAR HYPERAEMIA [None]
  - POST PROCEDURAL HAEMORRHAGE [None]
  - RECTAL HAEMORRHAGE [None]
